FAERS Safety Report 17745443 (Version 1)
Quarter: 2020Q2

REPORT INFORMATION
  Report Type: Spontaneous
  Country: US (occurrence: US)
  Receive Date: 20200504
  Receipt Date: 20200504
  Transmission Date: 20200714
  Serious: No
  Sender: FDA-Public Use
  Company Number: US-TEVA-2020-US-1229938

PATIENT
  Age: 58 Year
  Sex: Male
  Weight: 97.7 kg

DRUGS (3)
  1. ALBUTEROL SULFATE HFA [Concomitant]
     Active Substance: ALBUTEROL SULFATE
     Route: 065
  2. FLUTICASONE PROPIONATE AND SALMETEROL [Suspect]
     Active Substance: FLUTICASONE PROPIONATE\SALMETEROL XINAFOATE
     Dosage: THE DOSE WAS INCREASED TO TWICE A DAY
     Route: 065
  3. FLUTICASONE PROPIONATE AND SALMETEROL [Suspect]
     Active Substance: FLUTICASONE PROPIONATE\SALMETEROL XINAFOATE
     Indication: CHRONIC OBSTRUCTIVE PULMONARY DISEASE
     Dosage: FLUTICASONE PROPIONATE 55MCG AND SALMETEROL 14 MCG ONCE AT BEDTIME.
     Route: 065
     Dates: start: 2020

REACTIONS (6)
  - Dyspnoea [Unknown]
  - Hot flush [Unknown]
  - Product availability issue [Unknown]
  - Hypoaesthesia [Unknown]
  - Rash [Unknown]
  - Paraesthesia [Unknown]
